FAERS Safety Report 8541878-X (Version None)
Quarter: 2012Q3

REPORT INFORMATION
  Report Type: 
  Country: None (occurrence: None)
  Receive Date: 20120726
  Receipt Date: 20110912
  Transmission Date: 20120928
  Serious: No
  Sender: FDA-Public Use
  Company Number: US-ASTRAZENECA-2011SE54838

PATIENT
  Sex: Female

DRUGS (2)
  1. SEROQUEL [Suspect]
     Route: 048
  2. SEROQUEL [Suspect]
     Indication: BIPOLAR DISORDER
     Route: 048

REACTIONS (8)
  - BLOOD GLUCOSE INCREASED [None]
  - WEIGHT INCREASED [None]
  - CATARACT [None]
  - SINUS DISORDER [None]
  - DRY MOUTH [None]
  - PAIN IN EXTREMITY [None]
  - TENDONITIS [None]
  - BLOOD CHOLESTEROL INCREASED [None]
